FAERS Safety Report 7031246-4 (Version None)
Quarter: 2010Q4

REPORT INFORMATION
  Report Type: 
  Country: None (occurrence: None)
  Receive Date: 20101006
  Receipt Date: 20100929
  Transmission Date: 20110411
  Serious: Yes (Death, Hospitalization)
  Sender: FDA-Public Use
  Company Number: A0870637A

PATIENT
  Age: 66 Year
  Sex: Male

DRUGS (3)
  1. AVANDIA [Suspect]
     Route: 048
     Dates: start: 19940101
  2. PROZAC [Concomitant]
  3. CHEMOTHERAPY [Concomitant]

REACTIONS (2)
  - CARDIAC DISORDER [None]
  - COLON CANCER [None]
